FAERS Safety Report 12985569 (Version 4)
Quarter: 2016Q4

REPORT INFORMATION
  Report Type: Spontaneous
  Country: AT (occurrence: AT)
  Receive Date: 20161130
  Receipt Date: 20161221
  Transmission Date: 20170207
  Serious: Yes (Death, Life-Threatening, Hospitalization)
  Sender: FDA-Public Use
  Company Number: AT-ABBVIE-16K-009-1792942-00

PATIENT
  Age: 75 Year
  Sex: Male

DRUGS (2)
  1. DUODOPA [Suspect]
     Active Substance: CARBIDOPA\LEVODOPA
     Indication: ON AND OFF PHENOMENON
     Route: 050
     Dates: start: 20161123
  2. DUODOPA [Suspect]
     Active Substance: CARBIDOPA\LEVODOPA
     Indication: PARKINSON^S DISEASE
     Dosage: MD: 10 ML; CR: 3.8 ML/H; ED: 2 ML; 16 H THERAPY
     Route: 050
     Dates: start: 20161122, end: 201611

REACTIONS (11)
  - Restlessness [Fatal]
  - Pneumonia aspiration [Fatal]
  - Peritonitis [Fatal]
  - Ileus [Unknown]
  - Ileus paralytic [Fatal]
  - Gastric perforation [Unknown]
  - Pneumoperitoneum [Unknown]
  - Confusional state [Fatal]
  - Acute kidney injury [Fatal]
  - General physical health deterioration [Unknown]
  - Device use error [Not Recovered/Not Resolved]

NARRATIVE: CASE EVENT DATE: 201611
